FAERS Safety Report 8430466 (Version 3)
Quarter: 2014Q1

REPORT INFORMATION
  Report Type: Spontaneous
  Country: US (occurrence: US)
  Receive Date: 20120228
  Receipt Date: 20140210
  Transmission Date: 20141002
  Serious: Yes (Life-Threatening, Hospitalization)
  Sender: FDA-Public Use
  Company Number: US-BAYER-2012-017006

PATIENT
  Age: 29 Year
  Sex: Female
  Weight: 142.86 kg

DRUGS (9)
  1. BEYAZ [Suspect]
     Indication: CONTRACEPTION
     Dosage: UNK
     Route: 048
     Dates: start: 201102, end: 201105
  2. YAZ [Suspect]
     Dosage: UNK
     Route: 048
     Dates: start: 20110106, end: 20110504
  3. LEVAQUIN [Concomitant]
     Indication: SINUSITIS
     Dosage: 500 MG, UNK
     Route: 048
  4. LEVAQUIN [Concomitant]
     Indication: BRONCHITIS
  5. NOTUSS [Concomitant]
     Indication: SINUSITIS
     Route: 048
  6. NOTUSS [Concomitant]
     Indication: BRONCHITIS
  7. LINCOCIN [Concomitant]
     Indication: SINUSITIS
     Route: 048
  8. LINCOCIN [Concomitant]
     Indication: BRONCHITIS
  9. CELEBREX [Concomitant]
     Route: 048

REACTIONS (7)
  - Deep vein thrombosis [None]
  - Pulmonary embolism [None]
  - Mental disorder [None]
  - Dyspnoea [None]
  - Local swelling [None]
  - Gait disturbance [None]
  - Pain [None]
